FAERS Safety Report 4491550-0 (Version None)
Quarter: 2004Q4

REPORT INFORMATION
  Report Type: 
  Country: None (occurrence: None)
  Receive Date: 20041101
  Receipt Date: 20041019
  Transmission Date: 20050328
  Serious: Yes (Life-Threatening, Hospitalization)
  Sender: FDA-Public Use
  Company Number: 2000018016JP

PATIENT
  Age: 69 Year
  Sex: Female
  Weight: 46 kg

DRUGS (9)
  1. EPIRUBICIN [Suspect]
     Indication: BREAST CANCER FEMALE
     Dosage: SEE IMAGE
     Route: 042
     Dates: start: 20000112, end: 20000119
  2. EPIRUBICIN [Suspect]
     Indication: BREAST CANCER FEMALE
     Dosage: SEE IMAGE
     Route: 042
     Dates: start: 20000209, end: 20000216
  3. FLUOROURACIL [Suspect]
     Indication: BREAST CANCER FEMALE
     Dosage: 650 MG, QD, IV
     Route: 042
     Dates: start: 20000112, end: 20000119
  4. FLUOROURACIL [Suspect]
     Indication: BREAST CANCER FEMALE
     Dosage: 650 MG, QD, IV
     Route: 042
     Dates: start: 20000209, end: 20000216
  5. CYCLOPHOSPHAMIDE [Suspect]
     Indication: BREAST CANCER FEMALE
     Dosage: 100 MG, QD, ORAL
     Route: 048
     Dates: start: 20000112, end: 20000222
  6. NEUTROGIN (LENOGRASTIM) [Suspect]
     Dosage: 100 UG, QD, SUBCUTANEOUS
     Route: 058
     Dates: start: 20000222, end: 20000226
  7. PICIBANIL (STREPTOCOCCUS PYOGENES) [Concomitant]
  8. DOXORUBICIN HCL [Concomitant]
  9. FUROSEMIDE [Concomitant]

REACTIONS (4)
  - INTERSTITIAL LUNG DISEASE [None]
  - LEUKOPENIA [None]
  - NEUTROPENIA [None]
  - PYREXIA [None]
